FAERS Safety Report 7435428-9 (Version None)
Quarter: 2011Q2

REPORT INFORMATION
  Report Type: 
  Country: None (occurrence: None)
  Receive Date: 20110425
  Receipt Date: 20110415
  Transmission Date: 20111010
  Serious: Yes (Life-Threatening, Disabling)
  Sender: FDA-Public Use
  Company Number: US-MERCK-1104USA02264

PATIENT
  Age: 70 Year
  Sex: Female

DRUGS (2)
  1. JANUVIA [Suspect]
     Indication: TYPE 2 DIABETES MELLITUS
     Route: 048
     Dates: start: 20110315, end: 20110413
  2. HYDROCHLOROTHIAZIDE [Concomitant]
     Indication: HYPERTENSION
     Route: 065

REACTIONS (5)
  - ASTHENIA [None]
  - OROPHARYNGEAL PAIN [None]
  - FATIGUE [None]
  - UPPER RESPIRATORY TRACT INFECTION [None]
  - HEADACHE [None]
